FAERS Safety Report 8807570 (Version 1)
Quarter: 2012Q4

REPORT INFORMATION
  Report Type: 
  Country: US (occurrence: US)
  Receive Date: 20120925
  Receipt Date: 20120925
  Transmission Date: 20130627
  Serious: Yes (Other)
  Sender: FDA-Public Use
  Company Number: US-PFIZER INC-2012233918

PATIENT
  Age: 90 Year
  Sex: Male

DRUGS (1)
  1. TOVIAZ [Suspect]
     Dosage: 4 mg, UNK

REACTIONS (1)
  - Renal failure [Unknown]
